FAERS Safety Report 13758615 (Version 1)
Quarter: 2017Q3

REPORT INFORMATION
  Report Type: Spontaneous
  Country: US (occurrence: US)
  Receive Date: 20170716
  Receipt Date: 20170716
  Transmission Date: 20171127
  Serious: Yes (Other)
  Sender: FDA-Public Use
  Company Number: None

PATIENT
  Age: 57 Year
  Sex: Male
  Weight: 142.6 kg

DRUGS (19)
  1. CLARITIN [Concomitant]
     Active Substance: LORATADINE
  2. DUAL CHAMBER PACEMAKER [Concomitant]
  3. METOPROLOL. [Concomitant]
     Active Substance: METOPROLOL
  4. NEURONTIN [Concomitant]
     Active Substance: GABAPENTIN
  5. POTASSIUM [Concomitant]
     Active Substance: POTASSIUM
  6. FUROSEMIDE. [Concomitant]
     Active Substance: FUROSEMIDE
  7. RANITIDINE. [Concomitant]
     Active Substance: RANITIDINE
  8. ALLOPURINOL. [Concomitant]
     Active Substance: ALLOPURINOL
  9. BIPAP [Concomitant]
     Active Substance: DEVICE
  10. BENAZEPRIL [Concomitant]
     Active Substance: BENAZEPRIL HYDROCHLORIDE
  11. METFORMIN [Concomitant]
     Active Substance: METFORMIN HYDROCHLORIDE
  12. XARELTO [Concomitant]
     Active Substance: RIVAROXABAN
  13. VITAMIN D [Concomitant]
     Active Substance: CHOLECALCIFEROL
  14. BYDUREON [Suspect]
     Active Substance: EXENATIDE
     Indication: TYPE 2 DIABETES MELLITUS
     Dosage: ?          OTHER STRENGTH:MG;QUANTITY:1 INJECTIBLE PEN;OTHER FREQUENCY:WEEKLY;OTHER ROUTE:INJECTED IN STOMACH?
     Route: 058
     Dates: start: 20170713, end: 20170713
  15. MELOXICAM. [Concomitant]
     Active Substance: MELOXICAM
  16. BYDUREON [Concomitant]
     Active Substance: EXENATIDE
  17. STOOL SOFTENER (DOCUSATE) [Concomitant]
     Active Substance: DOCUSATE
  18. AMLODIPINE [Concomitant]
     Active Substance: AMLODIPINE BESYLATE
  19. MAGNESIUM OXIDE. [Concomitant]
     Active Substance: MAGNESIUM OXIDE

REACTIONS (9)
  - Vision blurred [None]
  - Arthralgia [None]
  - Fatigue [None]
  - Myalgia [None]
  - Asthenia [None]
  - Cholelithiasis [None]
  - Pancreatitis acute [None]
  - Headache [None]
  - Nausea [None]

NARRATIVE: CASE EVENT DATE: 20170714
